FAERS Safety Report 7062347-2 (Version None)
Quarter: 2010Q4

REPORT INFORMATION
  Report Type: 
  Country: None (occurrence: None)
  Receive Date: 20101026
  Receipt Date: 20101013
  Transmission Date: 20110411
  Serious: Yes (Hospitalization)
  Sender: FDA-Public Use
  Company Number: PHHY2010FR67717

PATIENT
  Age: 72 Year
  Sex: Female

DRUGS (2)
  1. RASILEZ [Suspect]
     Indication: HYPERTENSION
     Dosage: DAILY
     Route: 048
  2. ANTIHYPERTENSIVE DRUGS [Concomitant]

REACTIONS (2)
  - FATIGUE [None]
  - HAEMOLYTIC ANAEMIA [None]
